FAERS Safety Report 4459466-3 (Version None)
Quarter: 2004Q3

REPORT INFORMATION
  Report Type: 
  Country: None (occurrence: None)
  Receive Date: 20040927
  Receipt Date: 20040922
  Transmission Date: 20050211
  Serious: Yes (Death, Hospitalization)
  Sender: FDA-Public Use
  Company Number: PHBS2004JP12674

PATIENT
  Age: 70 Year
  Sex: Male

DRUGS (8)
  1. CARBAMAZEPINE [Suspect]
     Indication: EPILEPSY
     Route: 048
     Dates: start: 20030111, end: 20030307
  2. UNICON [Concomitant]
     Route: 048
     Dates: end: 20030307
  3. MEPTIN [Concomitant]
     Route: 048
     Dates: end: 20030307
  4. MONTELUKAST SODIUM [Concomitant]
     Route: 048
     Dates: end: 20030307
  5. SEVEN EP [Concomitant]
     Route: 048
     Dates: end: 20030307
  6. GASTER [Concomitant]
     Route: 048
     Dates: end: 20030307
  7. GRAMALIL [Concomitant]
     Route: 048
     Dates: end: 20030307
  8. ZONISAMIDE [Suspect]

REACTIONS (13)
  - ASPARTATE AMINOTRANSFERASE INCREASED [None]
  - BLOOD ALKALINE PHOSPHATASE INCREASED [None]
  - BLOOD LACTATE DEHYDROGENASE INCREASED [None]
  - C-REACTIVE PROTEIN INCREASED [None]
  - DRUG HYPERSENSITIVITY [None]
  - ERYTHEMA [None]
  - GAMMA-GLUTAMYLTRANSFERASE INCREASED [None]
  - HUMAN HERPES VIRUS 6 SEROLOGY POSITIVE [None]
  - LYMPHOCYTE STIMULATION TEST POSITIVE [None]
  - PNEUMONIA ASPIRATION [None]
  - PRURITUS [None]
  - PYREXIA [None]
  - WHITE BLOOD CELL COUNT INCREASED [None]
